FAERS Safety Report 24463050 (Version 1)
Quarter: 2024Q4

REPORT INFORMATION
  Report Type: Spontaneous
  Country: ES (occurrence: ES)
  Receive Date: 20241018
  Receipt Date: 20241018
  Transmission Date: 20250114
  Serious: Yes (Other)
  Sender: ELI LILLY AND COMPANY
  Company Number: ES-ELI_LILLY_AND_COMPANY-ES202410008199

PATIENT
  Age: 76 Year
  Sex: Female

DRUGS (1)
  1. ABEMACICLIB [Suspect]
     Active Substance: ABEMACICLIB
     Indication: Breast cancer
     Dosage: UNK UNK, UNKNOWN
     Route: 048

REACTIONS (8)
  - Thrombosis [Recovering/Resolving]
  - Loss of personal independence in daily activities [Recovering/Resolving]
  - Arthralgia [Recovering/Resolving]
  - Pain in extremity [Recovering/Resolving]
  - Depressed mood [Recovering/Resolving]
  - Localised infection [Recovering/Resolving]
  - Venous injury [Recovering/Resolving]
  - Diarrhoea [Recovered/Resolved]
